FAERS Safety Report 7422649-4 (Version None)
Quarter: 2011Q2

REPORT INFORMATION
  Report Type: 
  Country: None (occurrence: None)
  Receive Date: 20110419
  Receipt Date: 20110411
  Transmission Date: 20111010
  Serious: Yes (Hospitalization)
  Sender: FDA-Public Use
  Company Number: US-ASTELLAS-2011US000842

PATIENT
  Sex: Female
  Weight: 69 kg

DRUGS (5)
  1. FOLIC ACID [Concomitant]
     Indication: MEDICAL DIET
     Dosage: UNK
     Route: 048
  2. AMEVIVE [Suspect]
     Indication: PSORIASIS
     Dosage: 30 U, WEEKLY
     Route: 030
     Dates: start: 20090914, end: 20091130
  3. AMEVIVE [Suspect]
     Dosage: 30 U, WEEKLY
     Route: 030
     Dates: start: 20100315, end: 20100602
  4. ADDERALL 10 [Concomitant]
     Indication: ATTENTION DEFICIT/HYPERACTIVITY DISORDER
     Dosage: UNK
     Route: 048
  5. MULTIVITAMINS, COMBINATIONS [Concomitant]
     Indication: MEDICAL DIET
     Dosage: UNK
     Route: 048

REACTIONS (1)
  - GASTROENTERITIS [None]
